FAERS Safety Report 20226566 (Version 1)
Quarter: 2021Q4

REPORT INFORMATION
  Report Type: Spontaneous
  Country: JP (occurrence: JP)
  Receive Date: 20211224
  Receipt Date: 20211224
  Transmission Date: 20220303
  Serious: Yes (Other)
  Sender: FDA-Public Use
  Company Number: JP-JNJFOC-20211156620

PATIENT
  Age: 81 Year
  Sex: Female
  Weight: 39.1 kg

DRUGS (14)
  1. LOPERAMIDE HYDROCHLORIDE [Suspect]
     Active Substance: LOPERAMIDE HYDROCHLORIDE
     Indication: Diarrhoea
     Route: 048
     Dates: start: 20211106, end: 20211111
  2. VONOPRAZAN FUMARATE [Concomitant]
     Active Substance: VONOPRAZAN FUMARATE
     Indication: Chronic gastritis
     Route: 048
     Dates: start: 20211028
  3. BETAHISTINE MESILATE [Concomitant]
     Active Substance: BETAHISTINE MESILATE
     Indication: Dizziness
     Route: 048
     Dates: start: 20211101
  4. POSTERISAN [ESCHERICHIA COLI] [Concomitant]
     Indication: Haemorrhoids
     Dosage: 1BOTTLE/TIME
     Route: 061
     Dates: start: 20211102
  5. CALCIUM POLYCARBOPHIL [Concomitant]
     Active Substance: CALCIUM POLYCARBOPHIL
     Indication: Diarrhoea
     Route: 048
     Dates: start: 20211102
  6. ADETPHOS [Concomitant]
     Active Substance: ADENOSINE TRIPHOSPHATE
     Indication: Dizziness
     Dosage: 1 PACK
     Route: 048
     Dates: start: 20211106
  7. METHYLCOBALAMIN [Concomitant]
     Active Substance: METHYLCOBALAMIN
     Indication: Dizziness
     Route: 048
     Dates: start: 20211106
  8. MIYA-BM [Concomitant]
     Active Substance: CLOSTRIDIUM BUTYRICUM SPORES STRAIN M-55
     Indication: Diarrhoea
     Route: 048
  9. DIAZEPAM [Concomitant]
     Active Substance: DIAZEPAM
     Dosage: DOSE UNKNOWN
     Route: 065
  10. ROBAXIN [Concomitant]
     Active Substance: METHOCARBAMOL
     Dosage: DOSE UNKNOWN
     Route: 065
  11. PONSTEL [Concomitant]
     Active Substance: MEFENAMIC ACID
     Dosage: DOSE UNKNOWN
     Route: 048
  12. ACETAMINOPHEN [Concomitant]
     Active Substance: ACETAMINOPHEN
     Dosage: DOSE UNKNOWN
     Route: 065
  13. CAFFEINE HYDRATE [Concomitant]
     Dosage: DOSE UNKNOWN
     Route: 048
  14. UNISIA [Concomitant]
     Active Substance: AMLODIPINE BESYLATE\CANDESARTAN CILEXETIL
     Indication: Hypertension
     Route: 048

REACTIONS (1)
  - Liver disorder [Recovered/Resolved]

NARRATIVE: CASE EVENT DATE: 20211109
